FAERS Safety Report 6253332-9 (Version None)
Quarter: 2009Q3

REPORT INFORMATION
  Report Type: 
  Country: None (occurrence: None)
  Receive Date: 20090701
  Receipt Date: 20090626
  Transmission Date: 20100115
  Serious: Yes (Death)
  Sender: FDA-Public Use
  Company Number: PHEH2009US06878

PATIENT
  Sex: Male

DRUGS (5)
  1. GLEEVEC [Suspect]
     Indication: SMALL INTESTINE CARCINOMA
     Dosage: 800 MG/DAY
     Route: 048
     Dates: start: 20081001
  2. DILTIAZEM [Concomitant]
  3. NEXIUM [Concomitant]
  4. COUMADIN [Concomitant]
  5. OXYCONTIN [Concomitant]

REACTIONS (1)
  - DEATH [None]
